FAERS Safety Report 5175253-5 (Version None)
Quarter: 2006Q4

REPORT INFORMATION
  Report Type: 
  Country: None (occurrence: None)
  Receive Date: 20061211
  Receipt Date: 20061211
  Transmission Date: 20070319
  Serious: No
  Sender: FDA-Public Use
  Company Number: None

PATIENT
  Sex: Male
  Weight: 77.1115 kg

DRUGS (2)
  1. NAFCILLIN SODIUM [Suspect]
     Indication: BACTERAEMIA
     Dosage: 2 GM Q 8 HOURS IV
     Route: 042
     Dates: start: 20061115, end: 20061205
  2. AMPICILLIN SODIUM [Suspect]
     Indication: BACTERAEMIA
     Dosage: 2 GM Q 8 HRS IV
     Route: 042
     Dates: start: 20061115, end: 20061205

REACTIONS (3)
  - PRURITUS [None]
  - RASH ERYTHEMATOUS [None]
  - RASH GENERALISED [None]
